FAERS Safety Report 5495519-9 (Version None)
Quarter: 2007Q4

REPORT INFORMATION
  Report Type: 
  Country: None (occurrence: None)
  Receive Date: 20071023
  Receipt Date: 20071009
  Transmission Date: 20080405
  Serious: Yes (Hospitalization)
  Sender: FDA-Public Use
  Company Number: 310008M06FRA

PATIENT
  Age: 32 Year
  Sex: Female

DRUGS (3)
  1. GONAL-F [Suspect]
     Indication: OVARIAN DISORDER
     Dosage: SUBCUTANEOUS
     Route: 058
     Dates: start: 20060505, end: 20060512
  2. GONADORELIN /00486501/ [Suspect]
     Indication: OVARIAN DISORDER
     Dosage: INTRAMUSCULAR
     Route: 030
     Dates: start: 20060408, end: 20060512
  3. OVIDREL [Concomitant]

REACTIONS (7)
  - ALANINE AMINOTRANSFERASE INCREASED [None]
  - ASPARTATE AMINOTRANSFERASE INCREASED [None]
  - BLOOD ALKALINE PHOSPHATASE INCREASED [None]
  - BLOOD BILIRUBIN INCREASED [None]
  - GAMMA-GLUTAMYLTRANSFERASE INCREASED [None]
  - HEPATIC FUNCTION ABNORMAL [None]
  - OVARIAN HYPERSTIMULATION SYNDROME [None]
